FAERS Safety Report 9197961 (Version 2)
Quarter: 2013Q2

REPORT INFORMATION
  Report Type: Report from Study
  Country: GB (occurrence: GB)
  Receive Date: 20130328
  Receipt Date: 20130509
  Transmission Date: 20140414
  Serious: Yes (Hospitalization)
  Sender: FDA-Public Use
  Company Number: GB-PFIZER INC-2013092518

PATIENT
  Age: 91 Year
  Sex: Male

DRUGS (11)
  1. IBUPROFEN [Suspect]
     Indication: OSTEOARTHRITIS
     Dosage: 400 MG
     Route: 048
     Dates: start: 20110613, end: 20110913
  2. PARACETAMOL [Concomitant]
     Dosage: 1000 MG, UNK
  3. CALCICHEW-D3 [Concomitant]
     Dosage: UNK
     Dates: start: 20110930
  4. FINASTERIDE [Concomitant]
     Dosage: 5 MG, 1X/DAY
     Dates: start: 20080211
  5. ACETYLSALICYLIC ACID [Concomitant]
     Dosage: 75 MG, 1X/DAY
     Dates: start: 20111005
  6. ATORVASTATIN [Concomitant]
     Indication: MYOCARDIAL INFARCTION
     Dosage: 80 MG, 1X/DAY
     Dates: start: 20120801
  7. BISOPROLOL FUMARATE [Concomitant]
     Dosage: 1 MG, 1X/DAY
     Dates: start: 20120801
  8. CLOPIDOGREL [Concomitant]
     Dosage: 75 MG, 1X/DAY
     Dates: start: 20120126
  9. GTN [Concomitant]
     Dosage: 400 UG, UNK
     Dates: start: 20120724
  10. NICORANDIL [Concomitant]
     Dosage: 20 MG, 2X/DAY
     Dates: start: 20121227
  11. RAMIPRIL [Concomitant]
     Dosage: 2 MG, 1X/DAY
     Dates: start: 20121228

REACTIONS (1)
  - Acute myocardial infarction [Recovered/Resolved with Sequelae]
